FAERS Safety Report 4620068-7 (Version None)
Quarter: 2005Q1

REPORT INFORMATION
  Report Type: 
  Country: None (occurrence: None)
  Receive Date: 20050323
  Receipt Date: 20050323
  Transmission Date: 20050727
  Serious: Yes (Other)
  Sender: FDA-Public Use
  Company Number: None

PATIENT
  Age: 51 Year
  Sex: Male
  Weight: 107 kg

DRUGS (2)
  1. CHLORPROMAZINE [Suspect]
     Dosage: QD   ORAL
     Route: 048
  2. LITHIUM    300 MG [Suspect]
     Dosage: 1200MG  QD   ORAL
     Route: 048

REACTIONS (1)
  - DRUG INTERACTION [None]
